FAERS Safety Report 15900813 (Version 1)
Quarter: 2019Q1

REPORT INFORMATION
  Report Type: Spontaneous
  Country: US (occurrence: US)
  Receive Date: 20190201
  Receipt Date: 20190201
  Transmission Date: 20190417
  Serious: Yes (Life-Threatening, Hospitalization, Other)
  Sender: FDA-Public Use
  Company Number: US-NEXUS PHARMA-000004

PATIENT
  Age: 77 Year
  Sex: Female

DRUGS (10)
  1. ISOPROTERENOL HYDROCHLORIDE. [Suspect]
     Active Substance: ISOPROTERENOL HYDROCHLORIDE
     Indication: ATRIOVENTRICULAR BLOCK
     Route: 041
  2. EZETIMIBE. [Concomitant]
     Active Substance: EZETIMIBE
  3. INSULIN LISPRO/INSULIN LISPRO PROTAMINE SUSPE [Concomitant]
     Indication: TYPE 1 DIABETES MELLITUS
     Dosage: 4 UNITS TID WITH MEALS
  4. POTASSIUM CHLORIDE. [Concomitant]
     Active Substance: POTASSIUM CHLORIDE
  5. INSULIN GLARGINE [Concomitant]
     Active Substance: INSULIN GLARGINE
     Indication: TYPE 1 DIABETES MELLITUS
     Dosage: 24 UNITS
  6. LISINOPRIL. [Concomitant]
     Active Substance: LISINOPRIL
  7. ENOXAPARIN [Concomitant]
     Active Substance: ENOXAPARIN
  8. FLUOXETINE [Concomitant]
     Active Substance: FLUOXETINE HYDROCHLORIDE
  9. LEVOTHYROXINE. [Concomitant]
     Active Substance: LEVOTHYROXINE
  10. PRAVASTATIN. [Concomitant]
     Active Substance: PRAVASTATIN

REACTIONS (2)
  - Insulin resistance [Recovered/Resolved]
  - Diabetic ketoacidosis [Recovered/Resolved]
